FAERS Safety Report 26103825 (Version 1)
Quarter: 2025Q4

REPORT INFORMATION
  Report Type: Other
  Country: GB (occurrence: GB)
  Receive Date: 20251129
  Receipt Date: 20251129
  Transmission Date: 20260118
  Serious: Yes (Other)
  Sender: GLENMARK
  Company Number: None

PATIENT
  Age: 59 Year
  Sex: Female
  Weight: 103 kg

DRUGS (6)
  1. DAPAGLIFLOZIN [Suspect]
     Active Substance: DAPAGLIFLOZIN
     Indication: Ill-defined disorder
     Dosage: 10 MILLIGRAM
     Route: 065
     Dates: start: 20240603
  2. CITALOPRAM [Concomitant]
     Active Substance: CITALOPRAM
     Indication: Ill-defined disorder
     Dosage: 1 DOSAGE FORM, OD (ONE TABLET TO BE TAKEN ONCE A DAY
     Route: 065
     Dates: start: 20241219
  3. METFORMIN [Concomitant]
     Active Substance: METFORMIN HYDROCHLORIDE
     Indication: Ill-defined disorder
     Dosage: 2 DOSAGE FORM, BID (TWO TABLETS TO BE TAKEN TWICE DAILY AFTER MEALS)
     Route: 065
     Dates: start: 20241219
  4. RAMIPRIL [Concomitant]
     Active Substance: RAMIPRIL
     Indication: Ill-defined disorder
     Dosage: 1 DOSAGE FORM, OD (ONE CAPSULE TO BE TAKEN ONCE A DAY TO REDUCE B...
     Route: 065
     Dates: start: 20241219
  5. INDAPAMIDE [Concomitant]
     Active Substance: INDAPAMIDE
     Indication: Ill-defined disorder
     Dosage: 1 DOSAGE FORM, AM (OE TABLET TO BE TAKEN ONCE A DAY IN THE MORNI..
     Route: 065
     Dates: start: 20250513
  6. MOUNJARO [Concomitant]
     Active Substance: TIRZEPATIDE
     Indication: Ill-defined disorder
     Dosage: 7.5 MILLIGRAM, QW (ONE DOSE OF 7.5MG TO BE ADMINISTERED ONCE A WEE...)
     Route: 065
     Dates: start: 20250708

REACTIONS (1)
  - Joint swelling [Recovered/Resolved]

NARRATIVE: CASE EVENT DATE: 20240603
